FAERS Safety Report 9557968 (Version 3)
Quarter: 2014Q1

REPORT INFORMATION
  Report Type: Spontaneous
  Country: US (occurrence: US)
  Receive Date: 20130926
  Receipt Date: 20140319
  Transmission Date: 20141002
  Serious: Yes (Hospitalization)
  Sender: FDA-Public Use
  Company Number: US-B.I. PHARMACEUTICALS,INC./RIDGEFIELD-2013-BI-29656BP

PATIENT
  Age: 78 Year
  Sex: Male
  Weight: 83.91 kg

DRUGS (10)
  1. PRADAXA [Suspect]
     Indication: ATRIAL FIBRILLATION
     Dosage: 300 MG
     Route: 048
     Dates: start: 20111020, end: 20111111
  2. PRADAXA [Suspect]
     Indication: ANTICOAGULANT THERAPY
  3. TENORMIN [Concomitant]
     Dosage: 50 MG
     Route: 065
     Dates: start: 2006
  4. EFFEXOR [Concomitant]
     Indication: DEPRESSION
     Dosage: 150 MG
     Route: 065
     Dates: start: 2006, end: 2011
  5. FLORINEFF [Concomitant]
     Indication: HYPERTENSION
     Dosage: 0.1 MG
     Route: 065
  6. KLONOPIN [Concomitant]
     Dosage: 0.5 MG
     Route: 065
  7. TRAZODONE [Concomitant]
     Route: 065
  8. SEROQUEL [Concomitant]
     Dosage: 37.5 MG
     Route: 065
     Dates: start: 2006
  9. PANTOPRAZOLE [Concomitant]
     Dosage: 40 MG
     Route: 065
  10. MIRTAZAPINE [Concomitant]
     Dosage: 7.5 MG
     Route: 065

REACTIONS (6)
  - Gastrointestinal haemorrhage [Unknown]
  - Anaemia [Unknown]
  - Renal failure acute [Unknown]
  - Nausea [Unknown]
  - Vomiting [Unknown]
  - Abdominal pain [Unknown]
